FAERS Safety Report 13911958 (Version 1)
Quarter: 2017Q3

REPORT INFORMATION
  Report Type: Spontaneous
  Country: US (occurrence: US)
  Receive Date: 20170827
  Receipt Date: 20170827
  Transmission Date: 20171127
  Serious: No
  Sender: FDA-Public Use
  Company Number: None

PATIENT
  Age: 34 Year
  Weight: 63 kg

DRUGS (3)
  1. SCOPOLAMINE TRANSDERMAL PATCH [Suspect]
     Active Substance: SCOPOLAMINE
     Indication: PREOPERATIVE CARE
     Dates: start: 20170822, end: 20170824
  2. SCOPOLAMINE TRANSDERMAL PATCH [Suspect]
     Active Substance: SCOPOLAMINE
     Dates: start: 20170822, end: 20170824
  3. DAILY VITAMIN [Concomitant]
     Active Substance: VITAMINS

REACTIONS (5)
  - Dizziness [None]
  - Therapeutic response shortened [None]
  - Withdrawal syndrome [None]
  - Paraesthesia [None]
  - Vision blurred [None]

NARRATIVE: CASE EVENT DATE: 20170824
